FAERS Safety Report 15124575 (Version 1)
Quarter: 2018Q3

REPORT INFORMATION
  Report Type: Spontaneous
  Country: US (occurrence: US)
  Receive Date: 20180710
  Receipt Date: 20180710
  Transmission Date: 20181010
  Serious: No
  Sender: FDA-Public Use
  Company Number: US-PFIZER INC-2017279481

PATIENT
  Age: 6 Year
  Sex: Male

DRUGS (2)
  1. GENOTROPIN [Suspect]
     Active Substance: SOMATROPIN
     Dosage: 0.4 MG, DAILY (7 DAYS /WEEK)
     Dates: start: 201511
  2. GENOTROPIN [Suspect]
     Active Substance: SOMATROPIN
     Dosage: 0.4 MG AND 0.6 MG, ALTERNATE DAY
     Dates: start: 20151106

REACTIONS (3)
  - Thyroxine increased [Unknown]
  - Blood thyroid stimulating hormone increased [Unknown]
  - Drug dose omission [Unknown]
